FAERS Safety Report 6434884-2 (Version None)
Quarter: 2009Q4

REPORT INFORMATION
  Report Type: 
  Country: None (occurrence: None)
  Receive Date: 20091109
  Receipt Date: 20091109
  Transmission Date: 20100525
  Serious: Yes (Other)
  Sender: FDA-Public Use
  Company Number: None

PATIENT
  Age: 67 Year
  Sex: Female
  Weight: 75.7507 kg

DRUGS (1)
  1. LABETALOL HCL [Suspect]
     Indication: BLOOD PRESSURE INCREASED
     Dosage: 2 - PER DAY
     Dates: start: 20090101, end: 20091108

REACTIONS (2)
  - NECK PAIN [None]
  - PAIN [None]
